FAERS Safety Report 8031859-7 (Version None)
Quarter: 2012Q1

REPORT INFORMATION
  Report Type: 
  Country: None (occurrence: None)
  Receive Date: 20120109
  Receipt Date: 20111227
  Transmission Date: 20120608
  Serious: Yes (Hospitalization, Other)
  Sender: FDA-Public Use
  Company Number: JP-ELI_LILLY_AND_COMPANY-JP201111003963

PATIENT
  Sex: Female
  Weight: 54.4 kg

DRUGS (9)
  1. ZYPREXA [Suspect]
     Dosage: 5 MG, QD
     Route: 048
     Dates: start: 20060302, end: 20100622
  2. ZYPREXA [Suspect]
     Dosage: 5 MG, QD
     Route: 048
     Dates: start: 20111102
  3. ZYPREXA [Suspect]
     Indication: BIPOLAR DISORDER
     Dosage: 2.5 MG, QD
     Route: 048
     Dates: start: 20060223, end: 20060301
  4. ZYPREXA [Suspect]
     Dosage: 7.5 MG, QD
     Route: 048
     Dates: start: 20100623, end: 20110726
  5. PRAVASTATIN SODIUM [Concomitant]
     Indication: DYSLIPIDAEMIA
     Dosage: UNK
     Route: 048
  6. BEZATOL - SLOW RELEASE [Concomitant]
     Indication: DYSLIPIDAEMIA
     Dosage: UNK
     Route: 048
  7. ZOLOFT [Concomitant]
     Indication: ANTIDEPRESSANT THERAPY
     Dosage: UNK
     Route: 048
     Dates: start: 20071004, end: 20111023
  8. LEVOTHYROXINE SODIUM [Concomitant]
     Indication: HYPOTHYROIDISM
     Dosage: UNK
     Route: 048
  9. ZYPREXA [Suspect]
     Dosage: 7.5 MG, QD
     Route: 048
     Dates: start: 20111005, end: 20111023

REACTIONS (4)
  - WEIGHT INCREASED [None]
  - DEEP VEIN THROMBOSIS [None]
  - GLUCOSE TOLERANCE IMPAIRED [None]
  - PULMONARY EMBOLISM [None]
